FAERS Safety Report 6248879-5 (Version None)
Quarter: 2009Q2

REPORT INFORMATION
  Report Type: 
  Country: None (occurrence: None)
  Receive Date: 20090629
  Receipt Date: 20090623
  Transmission Date: 20091009
  Serious: Yes (Other)
  Sender: FDA-Public Use
  Company Number: GB-PFIZER INC-2009208414

PATIENT
  Age: 67 Year

DRUGS (3)
  1. LIPITOR [Suspect]
     Dosage: 10 MG, 1X/DAY
     Route: 048
     Dates: start: 20050606, end: 20090428
  2. SLOZEM [Interacting]
     Indication: CARDIAC DISORDER
     Dosage: 120 MG, 1X/DAY
     Dates: start: 20090508
  3. LANSOPRAZOLE [Concomitant]
     Dosage: 15 MG, 1X/DAY
     Dates: start: 20070711

REACTIONS (3)
  - BLOOD CREATINE PHOSPHOKINASE INCREASED [None]
  - CARDIAC ENZYMES INCREASED [None]
  - MYALGIA [None]
